FAERS Safety Report 5470129-8 (Version None)
Quarter: 2007Q3

REPORT INFORMATION
  Report Type: 
  Country: None (occurrence: None)
  Receive Date: 20070927
  Receipt Date: 20070917
  Transmission Date: 20080115
  Serious: Yes (Hospitalization)
  Sender: FDA-Public Use
  Company Number: SE-PFIZER INC-2007077449

PATIENT
  Age: 44 Year
  Sex: Female

DRUGS (6)
  1. LYRICA [Suspect]
     Indication: NEURALGIA
     Dosage: DAILY DOSE:100MG
     Route: 048
  2. CITALOPRAM HYDROBROMIDE [Concomitant]
  3. IMOVANE [Concomitant]
  4. STESOLID [Concomitant]
  5. DEXTROPROPOXYPHENE NAPSILATE [Concomitant]
  6. PARAFLEX [Concomitant]

REACTIONS (2)
  - ATRIAL FIBRILLATION [None]
  - RASH [None]
